FAERS Safety Report 9641619 (Version 1)
Quarter: 2013Q4

REPORT INFORMATION
  Report Type: Spontaneous
  Country: DE (occurrence: DE)
  Receive Date: 20131023
  Receipt Date: 20131023
  Transmission Date: 20140711
  Serious: Yes (Other)
  Sender: FDA-Public Use
  Company Number: DE-UCBSA-100974

PATIENT
  Age: 27 Year
  Sex: Female

DRUGS (3)
  1. CIMZIA [Suspect]
     Indication: RHEUMATOID ARTHRITIS
     Route: 058
     Dates: start: 201210, end: 201309
  2. MTX 10 [Concomitant]
     Indication: RHEUMATOID ARTHRITIS
     Route: 058
  3. PREDNISOLONE [Concomitant]
     Indication: RHEUMATOID ARTHRITIS
     Dosage: 5 DAILY (DOSE UNIT AND STRENGTH UNSPECIFIED)

REACTIONS (1)
  - Psoriasis [Recovering/Resolving]
